FAERS Safety Report 6248149-5 (Version None)
Quarter: 2009Q2

REPORT INFORMATION
  Report Type: 
  Country: None (occurrence: None)
  Receive Date: 20090624
  Receipt Date: 20090624
  Transmission Date: 20091009
  Serious: Yes (Other)
  Sender: FDA-Public Use
  Company Number: None

PATIENT
  Sex: Female
  Weight: 79.3795 kg

DRUGS (1)
  1. KEPPRA [Suspect]
     Indication: EPILEPSY
     Dosage: 2000 MG X DAY DAILY ORAL
     Route: 048
     Dates: start: 20090401, end: 20090506

REACTIONS (2)
  - CONVULSION [None]
  - WITHDRAWAL SYNDROME [None]
